FAERS Safety Report 8080597-3 (Version None)
Quarter: 2012Q1

REPORT INFORMATION
  Report Type: 
  Country: None (occurrence: None)
  Receive Date: 20120130
  Receipt Date: 20120123
  Transmission Date: 20120608
  Serious: Yes (Hospitalization, Disabling)
  Sender: FDA-Public Use
  Company Number: FR-B.I. PHARMACEUTICALS,INC./RIDGEFIELD-2011-FF-01000FF

PATIENT
  Sex: Female
  Weight: 65 kg

DRUGS (3)
  1. ASPIRIN [Concomitant]
     Dosage: 75 MG
  2. PRADAXA [Suspect]
     Indication: TRANSIENT ISCHAEMIC ATTACK
  3. PRADAXA [Suspect]
     Indication: ATRIAL FIBRILLATION
     Dosage: 220 MG
     Route: 048
     Dates: start: 20111005, end: 20111020

REACTIONS (2)
  - PERIPHERAL ISCHAEMIA [None]
  - THROMBOSIS IN DEVICE [None]
